FAERS Safety Report 13440835 (Version 1)
Quarter: 2017Q2

REPORT INFORMATION
  Report Type: Report from Study
  Country: IT (occurrence: IT)
  Receive Date: 20170413
  Receipt Date: 20170413
  Transmission Date: 20170830
  Serious: Yes (Hospitalization)
  Sender: FDA-Public Use
  Company Number: IT-ACCORD-050035

PATIENT
  Age: 19 Year
  Sex: Female
  Weight: 63 kg

DRUGS (5)
  1. METFORMIN [Suspect]
     Active Substance: METFORMIN HYDROCHLORIDE
     Dosage: 850 MG TOTAL
     Dates: start: 20170118
  2. MONTELUKAST ACCORD [Suspect]
     Active Substance: MONTELUKAST\MONTELUKAST SODIUM
     Route: 048
     Dates: start: 20170118
  3. TACHIPIRINA [Suspect]
     Active Substance: ACETAMINOPHEN
     Dosage: STRENGTH: 1000 MG
     Route: 048
     Dates: start: 20170118
  4. KETOTIFEN [Suspect]
     Active Substance: KETOTIFEN
     Dosage: 4 DF TOTAL
     Dates: start: 20170118
  5. EXPOSE [Suspect]
     Active Substance: EPERISONE HYDROCHLORIDE
     Dosage: 4 DF TOTAL
     Dates: start: 20170118

REACTIONS (3)
  - Vomiting [Unknown]
  - Drug use disorder [Unknown]
  - Intentional self-injury [Unknown]

NARRATIVE: CASE EVENT DATE: 20170118
